FAERS Safety Report 7044536-6 (Version None)
Quarter: 2010Q4

REPORT INFORMATION
  Report Type: 
  Country: None (occurrence: None)
  Receive Date: 20101013
  Receipt Date: 20101013
  Transmission Date: 20110411
  Serious: Yes (Hospitalization)
  Sender: FDA-Public Use
  Company Number: None

PATIENT
  Age: 67 Year
  Sex: Female
  Weight: 113.4 kg

DRUGS (4)
  1. DECITABINE [Suspect]
     Indication: MYELODYSPLASTIC SYNDROME
     Dosage: 23 MG SQ 3X WEEKLY
     Route: 058
     Dates: start: 20100914
  2. ACYCLOVIR SODIUM [Concomitant]
  3. CIPRO [Concomitant]
  4. LOVASTATIN [Concomitant]

REACTIONS (3)
  - BODY TEMPERATURE INCREASED [None]
  - FEELING COLD [None]
  - OROPHARYNGEAL PAIN [None]
